FAERS Safety Report 7340724-X (Version None)
Quarter: 2011Q1

REPORT INFORMATION
  Report Type: 
  Country: None (occurrence: None)
  Receive Date: 20110228
  Receipt Date: 20110215
  Transmission Date: 20110831
  Serious: Yes (Other)
  Sender: FDA-Public Use
  Company Number: US-2011-10069

PATIENT
  Age: 49 Year
  Sex: Female

DRUGS (8)
  1. FENTANYL ABZ (FENTANYL) [Concomitant]
  2. LEVAQUIN [Concomitant]
  3. CYCLOPHOSPHAMIDE [Concomitant]
  4. BUSULFAN [Suspect]
     Indication: LYMPHOMA
     Dosage: (35 MG MILLIGRAM(S),  DAILY DOSE, INTRAVENOUS) (193 MG MILLIGRAM(S), DAILY DOSE, INTRAVENOUS)
     Route: 042
     Dates: start: 20101229, end: 20110101
  5. BUSULFAN [Suspect]
     Indication: LYMPHOMA
     Dosage: (35 MG MILLIGRAM(S),  DAILY DOSE, INTRAVENOUS) (193 MG MILLIGRAM(S), DAILY DOSE, INTRAVENOUS)
     Route: 042
     Dates: start: 20101227, end: 20101227
  6. ACYCLOVIR [Concomitant]
  7. ETOPOSIDE [Concomitant]
  8. MS CONTIN [Concomitant]

REACTIONS (3)
  - POLLAKIURIA [None]
  - DELAYED ENGRAFTMENT [None]
  - DYSURIA [None]
